FAERS Safety Report 4422336-0 (Version None)
Quarter: 2004Q3

REPORT INFORMATION
  Report Type: 
  Country: None (occurrence: None)
  Receive Date: 20040810
  Receipt Date: 20040809
  Transmission Date: 20050211
  Serious: Yes (Other)
  Sender: FDA-Public Use
  Company Number: 2004014971

PATIENT
  Age: 19 Year
  Sex: Female
  Weight: 60 kg

DRUGS (4)
  1. QUILONUM RETARD [Suspect]
     Dosage: 16TAB SINGLE DOSE
     Route: 048
  2. DONEURIN [Suspect]
     Dosage: 50TAB SINGLE DOSE
     Route: 048
  3. TRUXAL [Suspect]
     Dosage: 2000MG SINGLE DOSE
     Route: 048
  4. ZOLPIDEM TARTRATE [Suspect]
     Dosage: 30TAB SINGLE DOSE
     Route: 048

REACTIONS (4)
  - LOSS OF CONSCIOUSNESS [None]
  - MULTIPLE DRUG OVERDOSE INTENTIONAL [None]
  - OVERDOSE [None]
  - SUICIDE ATTEMPT [None]
